FAERS Safety Report 22122581 (Version 2)
Quarter: 2023Q1

REPORT INFORMATION
  Report Type: Report from Study
  Country: CN (occurrence: CN)
  Receive Date: 20230321
  Receipt Date: 20230324
  Transmission Date: 20230418
  Serious: Yes (Hospitalization)
  Sender: FDA-Public Use
  Company Number: CN-SEATTLE GENETICS-2023SGN02730

PATIENT
  Age: 58 Year
  Sex: Female
  Weight: 59.9 kg

DRUGS (2)
  1. TUCATINIB [Suspect]
     Active Substance: TUCATINIB
     Indication: HER2 positive breast cancer
     Dosage: 300 MG, BID ON A 21-DAY CYCLE
     Route: 048
     Dates: start: 20230214, end: 20230313
  2. ADO-TRASTUZUMAB EMTANSINE [Suspect]
     Active Substance: ADO-TRASTUZUMAB EMTANSINE
     Indication: HER2 positive breast cancer
     Dosage: 3.6 MG/KG, Q3WEEKS
     Route: 042
     Dates: start: 20230214, end: 20230307

REACTIONS (2)
  - Drug-induced liver injury [Recovering/Resolving]
  - Thrombocytopenia [Recovered/Resolved]

NARRATIVE: CASE EVENT DATE: 20230313
